FAERS Safety Report 7690149-2 (Version None)
Quarter: 2011Q3

REPORT INFORMATION
  Report Type: 
  Country: None (occurrence: None)
  Receive Date: 20110811
  Receipt Date: 20110803
  Transmission Date: 20111222
  Serious: Yes (Other)
  Sender: FDA-Public Use
  Company Number: 2011SP036663

PATIENT
  Age: 27 Year
  Sex: Female
  Weight: 73 kg

DRUGS (2)
  1. NUVARING [Suspect]
     Indication: CONTRACEPTION
     Dosage: ; ; VAG  ;  ; VAG
     Route: 067
     Dates: start: 20080101, end: 20090601
  2. NUVARING [Suspect]
     Indication: CONTRACEPTION
     Dosage: ; ; VAG  ;  ; VAG
     Route: 067
     Dates: start: 20110501

REACTIONS (3)
  - PREGNANCY WITH CONTRACEPTIVE DEVICE [None]
  - MATERNAL EXPOSURE DURING PREGNANCY [None]
  - ABORTION [None]
